FAERS Safety Report 5241430-8 (Version None)
Quarter: 2007Q1

REPORT INFORMATION
  Report Type: 
  Country: None (occurrence: None)
  Receive Date: 20070212
  Receipt Date: 20070212
  Transmission Date: 20070707
  Serious: Yes (Life-Threatening, Hospitalization, Disabling)
  Sender: FDA-Public Use
  Company Number: None

PATIENT
  Age: 50 Year
  Sex: Female
  Weight: 181.4388 kg

DRUGS (1)
  1. SYMLIN [Suspect]
     Indication: DIABETES MELLITUS
     Dosage: 20 IU TID SC
     Route: 058
     Dates: start: 20060101, end: 20061201

REACTIONS (7)
  - HEPATIC CIRRHOSIS [None]
  - HEPATIC STEATOSIS [None]
  - PANCYTOPENIA [None]
  - PORTAL HYPERTENSION [None]
  - RENAL FAILURE ACUTE [None]
  - SPLENOMEGALY [None]
  - WEIGHT INCREASED [None]
